FAERS Safety Report 11888160 (Version 4)
Quarter: 2016Q3

REPORT INFORMATION
  Report Type: Spontaneous
  Country: PL (occurrence: PL)
  Receive Date: 20160105
  Receipt Date: 20160927
  Transmission Date: 20161109
  Serious: Yes (Other)
  Sender: FDA-Public Use
  Company Number: PL-SUN PHARMACEUTICAL INDUSTRIES LTD-2015R1-108643

PATIENT
  Age: 31 Year
  Sex: Male

DRUGS (9)
  1. CLOZAPINE. [Suspect]
     Active Substance: CLOZAPINE
     Dosage: 125 MG, DAILY
     Route: 065
  2. CLOZAPINE. [Suspect]
     Active Substance: CLOZAPINE
     Dosage: 175 MG, DAILY
     Route: 065
  3. CLOZAPINE. [Suspect]
     Active Substance: CLOZAPINE
     Indication: SCHIZOPHRENIA
     Dosage: 75 MG, DAILY
     Route: 065
  4. FLUPENTIXOL [Suspect]
     Active Substance: FLUPENTIXOL
     Indication: SCHIZOPHRENIA
     Dosage: 9 MG, DAILY
     Route: 065
  5. CITALOPRAM [Concomitant]
     Active Substance: CITALOPRAM HYDROBROMIDE
     Indication: PANIC ATTACK
     Dosage: 20 MG, DAILY
     Route: 065
  6. ZIPRASIDONE. [Suspect]
     Active Substance: ZIPRASIDONE
     Indication: SCHIZOPHRENIA
     Dosage: 160 MG, DAILY
     Route: 065
  7. CLOZAPINE. [Suspect]
     Active Substance: CLOZAPINE
     Indication: SCHIZOPHRENIA
     Dosage: DOSE REDUCED BY 25 MG
     Route: 065
  8. ROSUVASTATIN. [Concomitant]
     Active Substance: ROSUVASTATIN
     Indication: TYPE V HYPERLIPIDAEMIA
     Dosage: 20 MG, DAILY
     Route: 065
  9. FENOFIBRATE. [Concomitant]
     Active Substance: FENOFIBRATE
     Indication: TYPE V HYPERLIPIDAEMIA
     Dosage: 267 MG, DAILY
     Route: 065

REACTIONS (3)
  - Hepatotoxicity [Unknown]
  - Hypertriglyceridaemia [Recovered/Resolved]
  - Metabolic syndrome [Recovering/Resolving]
